FAERS Safety Report 15789138 (Version 5)
Quarter: 2020Q2

REPORT INFORMATION
  Report Type: Spontaneous
  Country: US (occurrence: US)
  Receive Date: 20190104
  Receipt Date: 20200617
  Transmission Date: 20200713
  Serious: No
  Sender: FDA-Public Use
  Company Number: US-PFIZER INC-2019004263

PATIENT
  Age: 61 Year
  Sex: Female

DRUGS (12)
  1. CLONIDINE. [Concomitant]
     Active Substance: CLONIDINE
     Dosage: 0.2 MG, 2X/DAY
  2. SOTALOL. [Concomitant]
     Active Substance: SOTALOL
     Dosage: 40 MG, 2X/DAY
  3. XELJANZ [Suspect]
     Active Substance: TOFACITINIB CITRATE
     Dosage: 5 MG, 2X/DAY
     Route: 048
     Dates: start: 202004
  4. DICLOFENAC [Concomitant]
     Active Substance: DICLOFENAC
     Dosage: 75 MG, 2X/DAY
  5. LOSARTAN. [Concomitant]
     Active Substance: LOSARTAN
     Dosage: 50 MG, 2X/DAY
  6. FELODIPINE. [Concomitant]
     Active Substance: FELODIPINE
     Dosage: UNK UNK, 2X/DAY
  7. OXYCODONE [Concomitant]
     Active Substance: OXYCODONE
     Dosage: UNK UNK, 1X/DAY, (5/325 MG)
  8. NORFLOXACIN [Concomitant]
     Active Substance: NORFLOXACIN
     Dosage: 100 MG, 1X/DAY
  9. XELJANZ [Suspect]
     Active Substance: TOFACITINIB CITRATE
     Indication: RHEUMATOID ARTHRITIS
     Dosage: 5 MG, 2X/DAY
     Route: 048
     Dates: start: 20181101
  10. ELIQUIS [Concomitant]
     Active Substance: APIXABAN
     Dosage: 5 MG, 2X/DAY
  11. XELJANZ [Suspect]
     Active Substance: TOFACITINIB CITRATE
     Dosage: 10 MG, 2X/DAY
     Dates: start: 201811
  12. VITAMIN D [COLECALCIFEROL] [Concomitant]
     Active Substance: CHOLECALCIFEROL
     Dosage: 400 IU, UNK

REACTIONS (8)
  - Weight increased [Not Recovered/Not Resolved]
  - Rotator cuff syndrome [Unknown]
  - Increased appetite [Unknown]
  - Musculoskeletal pain [Not Recovered/Not Resolved]
  - Off label use [Unknown]
  - Urine odour abnormal [Not Recovered/Not Resolved]
  - Hunger [Unknown]
  - Food craving [Unknown]
